FAERS Safety Report 5739558-9 (Version None)
Quarter: 2008Q2

REPORT INFORMATION
  Report Type: 
  Country: None (occurrence: None)
  Receive Date: 20080515
  Receipt Date: 20080421
  Transmission Date: 20081010
  Serious: No
  Sender: FDA-Public Use
  Company Number: US-BOEHRINGER INGELHEIM GMBH, GERMANY-2007-BP-23954PF

PATIENT
  Age: 64 Year
  Sex: Female

DRUGS (3)
  1. SPIRIVA [Suspect]
     Dates: end: 20071101
  2. PROVENTIL [Concomitant]
  3. ALBUTEROL [Concomitant]

REACTIONS (6)
  - DIZZINESS [None]
  - HEART RATE INCREASED [None]
  - NAUSEA [None]
  - SINUS CONGESTION [None]
  - THROAT IRRITATION [None]
  - VISUAL DISTURBANCE [None]
